APPROVED DRUG PRODUCT: IBUPRIN
Active Ingredient: IBUPROFEN
Strength: 200MG
Dosage Form/Route: TABLET;ORAL
Application: A071773 | Product #001
Applicant: PLIVA INC
Approved: Jul 16, 1987 | RLD: No | RS: No | Type: DISCN